FAERS Safety Report 9749420 (Version 1)
Quarter: 2013Q4

REPORT INFORMATION
  Report Type: Spontaneous
  Country: US (occurrence: US)
  Receive Date: 20131212
  Receipt Date: 20131212
  Transmission Date: 20140711
  Serious: No
  Sender: FDA-Public Use
  Company Number: US-BIOGENIDEC-2013BI093314

PATIENT
  Sex: Female

DRUGS (7)
  1. TECFIDERA [Suspect]
     Indication: PRODUCT USED FOR UNKNOWN INDICATION
     Route: 048
  2. CALCIUM [Concomitant]
  3. VITAMIN D [Concomitant]
  4. LYRICA [Concomitant]
  5. OMEPRAZOLE [Concomitant]
  6. OXYBUTYNIN [Concomitant]
  7. TRAMADOL [Concomitant]

REACTIONS (2)
  - Dizziness [Unknown]
  - Disorientation [Unknown]
